FAERS Safety Report 16918075 (Version 2)
Quarter: 2019Q4

REPORT INFORMATION
  Report Type: Spontaneous
  Country: ES (occurrence: ES)
  Receive Date: 20191015
  Receipt Date: 20191119
  Transmission Date: 20200122
  Serious: Yes (Other)
  Sender: FDA-Public Use
  Company Number: ES-AUROBINDO-AUR-APL-2019-066069

PATIENT
  Age: 58 Year
  Sex: Female
  Weight: 48 kg

DRUGS (11)
  1. OXALIPLATIN CONCENTRATE FOR SOLUTION FOR INFUSION [Suspect]
     Active Substance: OXALIPLATIN
     Indication: METASTASES TO LIVER
     Dosage: 100 MILLIGRAM/SQ. METER (HEPATIC ARTERY INFUSION CHEMOTHERAPY, EVERY 2 WEEKS)
     Route: 013
     Dates: start: 201710
  2. OXALIPLATIN CONCENTRATE FOR SOLUTION FOR INFUSION [Suspect]
     Active Substance: OXALIPLATIN
     Indication: LUNG ADENOCARCINOMA
  3. FOLINIC ACID [Suspect]
     Active Substance: LEUCOVORIN
     Indication: METASTASES TO LIVER
  4. NIVOLUMAB [Concomitant]
     Active Substance: NIVOLUMAB
     Indication: METASTASES TO LIVER
     Dosage: 3 MILLIGRAM/KILOGRAM, TOTAL DOSE OF 140 MG AT DAY ONE
     Route: 065
     Dates: start: 201705
  5. NIVOLUMAB [Concomitant]
     Active Substance: NIVOLUMAB
     Indication: METASTASES TO PERITONEUM
  6. FLUOROURACIL. [Suspect]
     Active Substance: FLUOROURACIL
     Indication: LUNG ADENOCARCINOMA
     Dosage: 400 MILLIGRAM/SQ. METER, CYCLICAL, TOTAL DOSE OF 570 MG AT DAY ONE
     Route: 040
     Dates: start: 201710
  7. FLUOROURACIL. [Suspect]
     Active Substance: FLUOROURACIL
     Indication: METASTASES TO LIVER
     Dosage: 1200 MILLIGRAM/SQ. METER (FOR , OD 5-FLUOURACIL 1200MG/M^2/DAY, TOTAL DOSE OF 3600MG/46H 46 HOURS)
     Route: 041
     Dates: start: 201710
  8. FOLINIC ACID [Suspect]
     Active Substance: LEUCOVORIN
     Indication: LUNG ADENOCARCINOMA
     Dosage: 400 MILLIGRAM/SQ. METER, CYCLICAL, TOTAL DOSE OF 570 MG AT DAY ONE
     Route: 013
     Dates: start: 20171013, end: 2017
  9. NIVOLUMAB [Concomitant]
     Active Substance: NIVOLUMAB
     Indication: LUNG ADENOCARCINOMA
  10. NIVOLUMAB [Concomitant]
     Active Substance: NIVOLUMAB
     Indication: METASTASES TO PLEURA
  11. NIVOLUMAB [Concomitant]
     Active Substance: NIVOLUMAB
     Indication: METASTASES TO CENTRAL NERVOUS SYSTEM

REACTIONS (3)
  - Neutropenia [Recovered/Resolved]
  - Toxicity to various agents [Recovered/Resolved]
  - Thrombocytopenia [Recovered/Resolved]

NARRATIVE: CASE EVENT DATE: 20171027
